FAERS Safety Report 15741783 (Version 1)
Quarter: 2018Q4

REPORT INFORMATION
  Report Type: Spontaneous
  Country: US (occurrence: US)
  Receive Date: 20181219
  Receipt Date: 20181219
  Transmission Date: 20190205
  Serious: No
  Sender: FDA-Public Use
  Company Number: US-ASTRAZENECA-2018SF53731

PATIENT
  Sex: Female

DRUGS (1)
  1. FASENRA [Suspect]
     Active Substance: BENRALIZUMAB
     Dosage: UNKNOWN
     Route: 058

REACTIONS (7)
  - Malaise [Unknown]
  - Pruritus [Not Recovered/Not Resolved]
  - Bronchitis [Unknown]
  - Wheezing [Unknown]
  - Sneezing [Unknown]
  - Milia [Unknown]
  - Rash [Unknown]
